FAERS Safety Report 25475657 (Version 2)
Quarter: 2025Q3

REPORT INFORMATION
  Report Type: Report from Study
  Country: US (occurrence: US)
  Receive Date: 20250624
  Receipt Date: 20250708
  Transmission Date: 20251020
  Serious: Yes (Hospitalization, Other)
  Sender: GILEAD
  Company Number: US-GILEAD-2025-0718099

PATIENT
  Age: 63 Year
  Sex: Male

DRUGS (18)
  1. AZTREONAM LYSINE [Suspect]
     Active Substance: AZTREONAM LYSINE
     Indication: Bronchiectasis
     Dosage: INHALE ONE ML VIA NEBULIZER THREE TIMES DAILY FOR 28 DAYS ON THEN 28 DAYS OFF
     Route: 055
     Dates: start: 20250701
  2. AZTREONAM LYSINE [Suspect]
     Active Substance: AZTREONAM LYSINE
     Dosage: INHALE ONE ML VIA NEBULIZER THREE TIMES DAILY FOR 28 DAYS ON THEN 28 DAYS OFF
     Route: 055
     Dates: start: 20240330
  3. ALBUTEROL SULFATE [Concomitant]
     Active Substance: ALBUTEROL SULFATE
  4. BACLOFEN [Concomitant]
     Active Substance: BACLOFEN
  5. MINERALS\VITAMINS [Concomitant]
     Active Substance: MINERALS\VITAMINS
  6. FINASTERIDE [Concomitant]
     Active Substance: FINASTERIDE
  7. HUMALOG [Concomitant]
     Active Substance: INSULIN LISPRO
  8. LANTUS [Concomitant]
     Active Substance: INSULIN GLARGINE
  9. LEVOTHYROXINE [Concomitant]
     Active Substance: LEVOTHYROXINE
  10. LIPITOR [Concomitant]
     Active Substance: ATORVASTATIN CALCIUM
  11. MELATONIN [Concomitant]
     Active Substance: MELATONIN
  12. MEROPENEM [Concomitant]
     Active Substance: MEROPENEM
  13. METOPROLOL TARTRATE [Concomitant]
     Active Substance: METOPROLOL TARTRATE
  14. MUCUS RELIEF DM [DEXTROMETHORPHAN;GUAIFENESIN] [Concomitant]
  15. PANTOPRAZOLE [Concomitant]
     Active Substance: PANTOPRAZOLE
  16. TRELEGY ELLIPTA [Concomitant]
     Active Substance: FLUTICASONE FUROATE\UMECLIDINIUM BROMIDE\VILANTEROL TRIFENATATE
  17. VORICONAZOLE [Concomitant]
     Active Substance: VORICONAZOLE
  18. XYZAL [Concomitant]
     Active Substance: LEVOCETIRIZINE DIHYDROCHLORIDE

REACTIONS (4)
  - Pneumonia [Unknown]
  - Carbon dioxide increased [Unknown]
  - Product use in unapproved indication [Not Recovered/Not Resolved]
  - Product use issue [Not Recovered/Not Resolved]

NARRATIVE: CASE EVENT DATE: 20250101
